FAERS Safety Report 5450840-5 (Version None)
Quarter: 2007Q3

REPORT INFORMATION
  Report Type: 
  Country: None (occurrence: None)
  Receive Date: 20070913
  Receipt Date: 20070910
  Transmission Date: 20080115
  Serious: Yes (Life-Threatening)
  Sender: FDA-Public Use
  Company Number: PHBS2007FI13931

PATIENT
  Age: 41 Year
  Sex: Male
  Weight: 84 kg

DRUGS (1)
  1. DIOVAN [Suspect]
     Indication: HYPERTENSION
     Dosage: 160 MG/DAY
     Route: 048
     Dates: start: 20070516, end: 20070618

REACTIONS (3)
  - FATIGUE [None]
  - HEART RATE DECREASED [None]
  - SOMNOLENCE [None]
